FAERS Safety Report 6596929-9 (Version None)
Quarter: 2010Q1

REPORT INFORMATION
  Report Type: 
  Country: None (occurrence: None)
  Receive Date: 20100222
  Receipt Date: 20100222
  Transmission Date: 20100710
  Serious: Yes (Other)
  Sender: FDA-Public Use
  Company Number: None

PATIENT
  Age: 63 Year
  Sex: Female
  Weight: 59.8748 kg

DRUGS (1)
  1. ASMANEX TWISTHALER [Suspect]
     Indication: LUNG DISORDER
     Dosage: 2 PUFFS ONCE A DAY PO
     Route: 048
     Dates: start: 20100114, end: 20100116

REACTIONS (4)
  - DYSPNOEA [None]
  - PALPITATIONS [None]
  - SKIN DISCOLOURATION [None]
  - WEIGHT INCREASED [None]
